FAERS Safety Report 7392073-1 (Version None)
Quarter: 2011Q2

REPORT INFORMATION
  Report Type: 
  Country: None (occurrence: None)
  Receive Date: 20110404
  Receipt Date: 20041118
  Transmission Date: 20111010
  Serious: Yes (Other)
  Sender: FDA-Public Use
  Company Number: A0534492A

PATIENT
  Age: 76 Year
  Sex: Female

DRUGS (7)
  1. LAMICTAL [Suspect]
     Indication: EPILEPSY
     Route: 048
     Dates: start: 20030101
  2. PLAVIX [Suspect]
     Indication: CAROTID ARTERY OCCLUSION
     Dosage: 75MGD PER DAY
     Dates: start: 20010101
  3. TOPROL-XL [Concomitant]
  4. NORVASC [Concomitant]
  5. ASPIRIN [Concomitant]
  6. HUMULIN N [Concomitant]
  7. BETIMOL [Concomitant]

REACTIONS (12)
  - VAGINAL HAEMORRHAGE [None]
  - SOMNOLENCE [None]
  - CONTUSION [None]
  - FLUSHING [None]
  - RASH [None]
  - URINARY TRACT INFECTION [None]
  - CONVULSION [None]
  - CHROMATURIA [None]
  - HAEMORRHAGE [None]
  - DRUG INTERACTION [None]
  - HYPERTENSION [None]
  - SPEECH DISORDER [None]
